FAERS Safety Report 13648192 (Version 1)
Quarter: 2017Q2

REPORT INFORMATION
  Report Type: Spontaneous
  Country: US (occurrence: US)
  Receive Date: 20170613
  Receipt Date: 20170613
  Transmission Date: 20170830
  Serious: No
  Sender: FDA-Public Use
  Company Number: US-ENDO PHARMACEUTICALS INC-2016-004264

PATIENT
  Age: 9 Year
  Sex: Female
  Weight: 56.75 kg

DRUGS (3)
  1. SUPPRELIN LA [Suspect]
     Active Substance: HISTRELIN ACETATE
     Indication: PRECOCIOUS PUBERTY
  2. SUPPRELIN LA [Suspect]
     Active Substance: HISTRELIN ACETATE
     Route: 065
     Dates: start: 20150524
  3. SUPPRELIN LA [Suspect]
     Active Substance: HISTRELIN ACETATE
     Route: 065
     Dates: start: 20160623

REACTIONS (2)
  - Drug effect decreased [Recovered/Resolved]
  - Emotional disorder [Recovered/Resolved]

NARRATIVE: CASE EVENT DATE: 201511
